FAERS Safety Report 11259470 (Version 3)
Quarter: 2019Q1

REPORT INFORMATION
  Report Type: Spontaneous
  Country: DE (occurrence: DE)
  Receive Date: 20150710
  Receipt Date: 20190208
  Transmission Date: 20190417
  Serious: Yes (Hospitalization, Other)
  Sender: FDA-Public Use
  Company Number: DE-PFIZER INC-2015225617

PATIENT
  Age: 93 Year
  Sex: Female

DRUGS (14)
  1. DOXEPIN HCL [Suspect]
     Active Substance: DOXEPIN HYDROCHLORIDE
     Indication: RESTLESSNESS
  2. RAMIPRIL. [Concomitant]
     Active Substance: RAMIPRIL
     Dosage: 5 MG, UNK
  3. BUSPIRONE [Suspect]
     Active Substance: BUSPIRONE HYDROCHLORIDE
     Dosage: 5 MG, UNK
  4. BROMAZANIL [Concomitant]
     Active Substance: BROMAZEPAM
     Indication: AGITATION
     Dosage: 4.5 MG, UNK
  5. LACTULOSE. [Concomitant]
     Active Substance: LACTULOSE
     Dosage: 10 ML, UNK
  6. BROMAZANIL [Concomitant]
     Active Substance: BROMAZEPAM
     Indication: RESTLESSNESS
  7. DOXEPIN HCL [Suspect]
     Active Substance: DOXEPIN HYDROCHLORIDE
     Indication: AGITATION
     Dosage: 10-10-25 MG
  8. RISPERIDONE. [Suspect]
     Active Substance: RISPERIDONE
     Indication: AGITATION
     Dosage: 0.5-0.5-0.5 MG
  9. RISPERIDONE. [Suspect]
     Active Substance: RISPERIDONE
     Indication: RESTLESSNESS
  10. BROMAZANIL [Concomitant]
     Active Substance: BROMAZEPAM
     Indication: RESTLESSNESS
  11. ASPIRIN. [Concomitant]
     Active Substance: ASPIRIN
     Dosage: 100 MG, UNK
  12. L-THYROXIN [Concomitant]
     Active Substance: LEVOTHYROXINE SODIUM
     Dosage: 75 ?G, UNK
  13. ANASTROZOLE. [Concomitant]
     Active Substance: ANASTROZOLE
     Dosage: 1 MG, UNK
  14. BROMAZANIL [Concomitant]
     Active Substance: BROMAZEPAM
     Indication: AGITATION
     Dosage: UNK

REACTIONS (1)
  - Hypothermia [Recovered/Resolved]
